FAERS Safety Report 7016223-1 (Version None)
Quarter: 2010Q3

REPORT INFORMATION
  Report Type: 
  Country: None (occurrence: None)
  Receive Date: 20100927
  Receipt Date: 20091216
  Transmission Date: 20110219
  Serious: No
  Sender: FDA-Public Use
  Company Number: US-ASTRAZENECA-2007UW25312

PATIENT
  Age: 74 Year
  Sex: Female
  Weight: 81.6 kg

DRUGS (6)
  1. ARIMIDEX [Suspect]
     Indication: BREAST CANCER STAGE II
     Route: 048
     Dates: start: 20060101
  2. ENALAPRIL [Concomitant]
  3. LEVOTHYROXINE SODIUM [Concomitant]
  4. PHENOBARBITAL [Concomitant]
  5. VITAMIN D [Concomitant]
  6. RADIOTHERAPY [Concomitant]

REACTIONS (11)
  - ARTHRALGIA [None]
  - BACK PAIN [None]
  - BONE DENSITY DECREASED [None]
  - COUGH [None]
  - FATIGUE [None]
  - FEELING COLD [None]
  - HEADACHE [None]
  - INTERVERTEBRAL DISC PROTRUSION [None]
  - PAIN IN EXTREMITY [None]
  - UTERINE ENLARGEMENT [None]
  - VITAMIN D DEFICIENCY [None]
